FAERS Safety Report 8607264-9 (Version None)
Quarter: 2012Q3

REPORT INFORMATION
  Report Type: 
  Country: None (occurrence: None)
  Receive Date: 20120821
  Receipt Date: 20120530
  Transmission Date: 20120928
  Serious: Yes (Other)
  Sender: FDA-Public Use
  Company Number: US-009507513-1208USA006763

PATIENT

DRUGS (9)
  1. VICTRELIS [Suspect]
     Dosage: 4 DF, TID
  2. ATARAX [Concomitant]
  3. VICTRELIS [Suspect]
     Dosage: 40 MG, TID
     Route: 048
  4. REBETOL [Suspect]
     Indication: HEPATITIS C
     Dosage: 800 MG, QD
     Route: 048
     Dates: start: 20110819
  5. VICTRELIS [Suspect]
     Indication: HEPATITIS C
     Dosage: 800 MG, TID
     Dates: start: 20110916
  6. DIURETIC (UNSPECIFIED) [Concomitant]
  7. VICTRELIS [Suspect]
     Dosage: UNK, TID
     Dates: start: 20110819
  8. XANAX [Concomitant]
  9. PEGINTERFERON ALFA-2A [Suspect]
     Indication: HEPATITIS C
     Dosage: 180 MICROGRAM, QW
     Route: 058
     Dates: start: 20110819, end: 20120418

REACTIONS (12)
  - INSOMNIA [None]
  - PYREXIA [None]
  - WEIGHT DECREASED [None]
  - PNEUMONIA [None]
  - CANDIDIASIS [None]
  - NAUSEA [None]
  - DEPRESSION [None]
  - DECREASED APPETITE [None]
  - SUICIDAL IDEATION [None]
  - PRURITUS [None]
  - EATING DISORDER [None]
  - HEADACHE [None]
